FAERS Safety Report 11618686 (Version 4)
Quarter: 2015Q4

REPORT INFORMATION
  Report Type: Spontaneous
  Country: GB (occurrence: GB)
  Receive Date: 20151012
  Receipt Date: 20151224
  Transmission Date: 20160304
  Serious: Yes (Hospitalization, Other)
  Sender: FDA-Public Use
  Company Number: GB-AMGEN-GBRSP2015092592

PATIENT
  Age: 61 Year
  Sex: Female

DRUGS (4)
  1. NEULASTA [Suspect]
     Active Substance: PEGFILGRASTIM
     Indication: PRODUCT USED FOR UNKNOWN INDICATION
     Dosage: UNK
     Route: 065
  2. FLUOROURACIL. [Concomitant]
     Active Substance: FLUOROURACIL
     Dosage: UNK
  3. EPIRUBICIN [Concomitant]
     Active Substance: EPIRUBICIN
     Dosage: UNK
  4. CYCLOPHOSPHAMIDE. [Concomitant]
     Active Substance: CYCLOPHOSPHAMIDE
     Dosage: UNK

REACTIONS (14)
  - Pyrexia [Unknown]
  - Nausea [Recovered/Resolved]
  - Central venous catheterisation [Unknown]
  - Paraesthesia [Unknown]
  - Neutropenic sepsis [Unknown]
  - Headache [Unknown]
  - Transfusion [Unknown]
  - Neuropathy peripheral [Unknown]
  - Fatigue [Recovering/Resolving]
  - Alopecia [Unknown]
  - Dry mouth [Unknown]
  - Neutropenia [Unknown]
  - Insomnia [Unknown]
  - Constipation [Unknown]

NARRATIVE: CASE EVENT DATE: 201509
